FAERS Safety Report 17907356 (Version 2)
Quarter: 2020Q3

REPORT INFORMATION
  Report Type: Report from Study
  Country: None (occurrence: US)
  Receive Date: 20200617
  Receipt Date: 20200703
  Transmission Date: 20201103
  Serious: No
  Sender: FDA-Public Use
  Company Number: US-BIOVITRUM-2020US1326

PATIENT
  Age: 24 Year
  Sex: Male

DRUGS (1)
  1. KINERET [Suspect]
     Active Substance: ANAKINRA
     Indication: HIDRADENITIS
     Route: 058
     Dates: start: 20200226

REACTIONS (4)
  - Fungal infection [Unknown]
  - Pruritus [Unknown]
  - Cyst [Unknown]
  - Off label use [Not Recovered/Not Resolved]

NARRATIVE: CASE EVENT DATE: 20200302
